FAERS Safety Report 6286684-4 (Version None)
Quarter: 2009Q3

REPORT INFORMATION
  Report Type: 
  Country: None (occurrence: None)
  Receive Date: 20090728
  Receipt Date: 20090723
  Transmission Date: 20100115
  Serious: Yes (Death)
  Sender: FDA-Public Use
  Company Number: PHEH2008US11560

PATIENT
  Sex: Male

DRUGS (8)
  1. GLEEVEC [Suspect]
     Dosage: 400 MG, QD
     Route: 048
     Dates: start: 20011201
  2. DIGOXIN [Concomitant]
  3. PLAVIX [Concomitant]
  4. LASIX [Concomitant]
  5. AMIODARONE [Concomitant]
  6. CITALOPRAM HYDROBROMIDE [Concomitant]
  7. CARVEDILOL [Concomitant]
  8. SYNTHROID [Concomitant]

REACTIONS (2)
  - CARDIAC DISORDER [None]
  - CIRCULATORY COLLAPSE [None]
